FAERS Safety Report 14390309 (Version 3)
Quarter: 2018Q4

REPORT INFORMATION
  Report Type: Report from Study
  Country: None (occurrence: BR)
  Receive Date: 20180116
  Receipt Date: 20181108
  Transmission Date: 20190204
  Serious: Yes (Other)
  Sender: FDA-Public Use
  Company Number: BR-ABBVIE-17K-020-2122868-00

PATIENT
  Age: 54 Year
  Sex: Female
  Weight: 52 kg

DRUGS (17)
  1. HUMIRA [Suspect]
     Active Substance: ADALIMUMAB
     Route: 058
  2. HUMIRA [Suspect]
     Active Substance: ADALIMUMAB
     Route: 058
  3. HYDROCHLOROTHIAZIDE. [Concomitant]
     Active Substance: HYDROCHLOROTHIAZIDE
     Indication: PRODUCT USED FOR UNKNOWN INDICATION
  4. ESCITALOPRAM [Concomitant]
     Active Substance: ESCITALOPRAM OXALATE
     Indication: DEPRESSION
  5. OXALATE [Concomitant]
     Indication: DEPRESSION
  6. LORATADINE. [Concomitant]
     Active Substance: LORATADINE
     Indication: RHINITIS ALLERGIC
  7. MESALAZINE [Concomitant]
     Active Substance: MESALAMINE
     Indication: PROPHYLAXIS
  8. PREDNISONE. [Suspect]
     Active Substance: PREDNISONE
     Indication: COLITIS ULCERATIVE
     Route: 065
  9. CALCIUM [Concomitant]
     Active Substance: CALCIUM
     Indication: PRODUCT USED FOR UNKNOWN INDICATION
  10. HUMIRA [Suspect]
     Active Substance: ADALIMUMAB
     Indication: COLITIS ULCERATIVE
     Route: 058
     Dates: start: 20120101
  11. CAPTOPRIL. [Suspect]
     Active Substance: CAPTOPRIL
     Indication: HYPERTENSION
     Route: 065
  12. OMEPRAZOLE. [Concomitant]
     Active Substance: OMEPRAZOLE
     Indication: GASTRIC DISORDER
  13. SALINE [Concomitant]
     Active Substance: SODIUM CHLORIDE
     Indication: RHINITIS ALLERGIC
  14. LOSARTAN. [Concomitant]
     Active Substance: LOSARTAN
     Indication: HYPERTENSION
  15. RIVOTRIL [Concomitant]
     Active Substance: CLONAZEPAM
     Indication: INSOMNIA
  16. LOSARTAN. [Concomitant]
     Active Substance: LOSARTAN
     Indication: BLOOD PRESSURE MEASUREMENT
     Dosage: 1 IN THE MORNING AND 1 IN THE NIGHT
  17. VITAMIN D [Concomitant]
     Active Substance: CHOLECALCIFEROL
     Indication: PRODUCT USED FOR UNKNOWN INDICATION

REACTIONS (27)
  - Memory impairment [Not Recovered/Not Resolved]
  - Intestinal ulcer [Unknown]
  - Nervousness [Unknown]
  - Head discomfort [Recovering/Resolving]
  - Nausea [Unknown]
  - Haemorrhage [Recovered/Resolved]
  - Colitis ulcerative [Recovered/Resolved]
  - Ultrasound scan abnormal [Unknown]
  - Type 2 diabetes mellitus [Recovered/Resolved]
  - Peripheral swelling [Recovering/Resolving]
  - Pain [Recovered/Resolved]
  - Haemorrhage [Recovered/Resolved]
  - Depression [Recovering/Resolving]
  - Pain in extremity [Recovering/Resolving]
  - Gastrointestinal haemorrhage [Recovered/Resolved]
  - Joint effusion [Recovering/Resolving]
  - Throat irritation [Recovered/Resolved]
  - Exostosis [Recovering/Resolving]
  - Insomnia [Not Recovered/Not Resolved]
  - Headache [Recovering/Resolving]
  - Pain [Unknown]
  - Weight increased [Unknown]
  - Dizziness [Recovered/Resolved]
  - Muscle spasms [Unknown]
  - Condition aggravated [Unknown]
  - Haemorrhage [Not Recovered/Not Resolved]
  - Oropharyngeal pain [Unknown]

NARRATIVE: CASE EVENT DATE: 201201
